FAERS Safety Report 9130829 (Version 2)
Quarter: 2013Q2

REPORT INFORMATION
  Report Type: Spontaneous
  Country: US (occurrence: US)
  Receive Date: 20130301
  Receipt Date: 20130506
  Transmission Date: 20140414
  Serious: Yes (Death, Hospitalization, Other)
  Sender: FDA-Public Use
  Company Number: US-PFIZER INC-2013068194

PATIENT
  Age: 69 Year
  Sex: Male
  Weight: 85.26 kg

DRUGS (15)
  1. REVATIO [Suspect]
     Indication: PULMONARY HYPERTENSION
     Dosage: 20 MG, 3X/DAY
     Route: 048
     Dates: start: 2009
  2. REVATIO [Suspect]
     Dosage: UNK
     Dates: start: 20130203
  3. ALLOPURINOL [Concomitant]
     Dosage: 100 MG, 1X/DAY
  4. PACERONE [Concomitant]
     Dosage: UNK
  5. TORSEMIDE [Concomitant]
     Dosage: 60 MG, 1X/DAY
  6. COREG [Concomitant]
     Dosage: 6.25 MG, 2X/DAY
  7. PRILOSEC [Concomitant]
     Dosage: 20 MG, UNK
  8. UROCIT-K [Concomitant]
     Dosage: UNK
  9. COUMADIN [Concomitant]
     Dosage: 3.5 MG ALL DAYS EXCEPT 4.5 MG IN R
  10. LANTUS [Concomitant]
     Dosage: 20 UNITS, QHS
  11. NOVOLOG [Concomitant]
     Dosage: 20 UNITS, 3X/DAY
  12. LIPITOR [Concomitant]
     Dosage: 8 MG, 1X/DAY
  13. PAXIL [Concomitant]
     Dosage: 20 MG, 1X/DAY
  14. AMBIEN [Concomitant]
     Dosage: 10 MG, QHS
  15. AMLODIPINE [Concomitant]
     Dosage: 300 MG, 1X/DAY

REACTIONS (6)
  - Ischaemic cardiomyopathy [Fatal]
  - Cardiac disorder [Unknown]
  - Cardiac arrest [Fatal]
  - Cardiac tamponade [Fatal]
  - Right ventricular failure [Fatal]
  - Left ventricular failure [Fatal]
